FAERS Safety Report 25958411 (Version 1)
Quarter: 2025Q4

REPORT INFORMATION
  Report Type: Spontaneous
  Country: US (occurrence: US)
  Receive Date: 20251024
  Receipt Date: 20251024
  Transmission Date: 20260117
  Serious: No
  Sender: DR REDDYS
  Company Number: US-DRL-USA-USA/2025/10/015593

PATIENT
  Age: 17 Year
  Sex: Female

DRUGS (15)
  1. CITALOPRAM [Suspect]
     Active Substance: CITALOPRAM
     Indication: Catatonia
     Dosage: 1 YEAR 10 MG DAILY
  2. VALPROIC ACID [Suspect]
     Active Substance: VALPROIC ACID
     Indication: Catatonia
     Dosage: UP TO 375 MG BID
  3. RISPERIDONE [Suspect]
     Active Substance: RISPERIDONE
     Indication: Catatonia
     Dosage: 0.5 MG BID OVER 2 YEARS
  4. ZIPRASIDONE [Suspect]
     Active Substance: ZIPRASIDONE
     Indication: Catatonia
     Dosage: 20 MG TID
  5. ARIPIPRAZOLE [Concomitant]
     Active Substance: ARIPIPRAZOLE
     Indication: Catatonia
     Dosage: 2 MG DAILY OVER 1 YEAR
  6. ADDERALL [Concomitant]
     Active Substance: AMPHETAMINE ASPARTATE\AMPHETAMINE SULFATE\DEXTROAMPHETAMINE SACCHARATE\DEXTROAMPHETAMINE SULFATE
     Indication: Catatonia
  7. VYVANSE [Concomitant]
     Active Substance: LISDEXAMFETAMINE DIMESYLATE
     Indication: Catatonia
  8. RITALIN [Concomitant]
     Active Substance: METHYLPHENIDATE HYDROCHLORIDE
     Indication: Catatonia
  9. CONCERTA [Concomitant]
     Active Substance: METHYLPHENIDATE HYDROCHLORIDE
     Indication: Catatonia
  10. SERTRALINE [Concomitant]
     Active Substance: SERTRALINE HYDROCHLORIDE
     Indication: Catatonia
     Dosage: OVER 1 YEAR 100 MG DAILY
  11. NAC [Concomitant]
     Indication: Catatonia
     Dosage: 2400 MG OVER 2 YEARS
  12. TRAZODONE [Concomitant]
     Active Substance: TRAZODONE HYDROCHLORIDE
     Indication: Catatonia
     Dosage: 100 MG NIGHTLY FOR SEVERAL YEARS
  13. CARBAMAZEPINE [Concomitant]
     Active Substance: CARBAMAZEPINE
     Indication: Catatonia
     Dosage: USED EARLY CHILDHOOD
  14. guanfacine/Intuniv [Concomitant]
     Indication: Catatonia
     Dosage: 1 MG DAILY FOR SEVERAL YEARS
  15. clonidine/Kapvay [Concomitant]
     Indication: Catatonia
     Dosage: 0.2 MG NIGHTLY FOR SEVERAL YEARS

REACTIONS (6)
  - Affect lability [Unknown]
  - Insomnia [Unknown]
  - Aggression [Unknown]
  - Weight increased [Unknown]
  - Incontinence [Unknown]
  - Drug ineffective for unapproved indication [Unknown]
